FAERS Safety Report 6154536-6 (Version None)
Quarter: 2009Q2

REPORT INFORMATION
  Report Type: 
  Country: None (occurrence: None)
  Receive Date: 20090410
  Receipt Date: 20090410
  Transmission Date: 20091009
  Serious: Yes (Death)
  Sender: FDA-Public Use
  Company Number: None

PATIENT
  Age: 86 Year
  Sex: Male
  Weight: 72.5755 kg

DRUGS (1)
  1. DIGOXIN [Suspect]
     Indication: CARDIAC PACEMAKER INSERTION
     Dosage: 125 MG 1 PER DAY BUCCAL
     Route: 002
     Dates: start: 20020101, end: 20090318

REACTIONS (1)
  - PRODUCT QUALITY ISSUE [None]
